FAERS Safety Report 19092829 (Version 1)
Quarter: 2021Q2

REPORT INFORMATION
  Report Type: Spontaneous
  Country: ES (occurrence: ES)
  Receive Date: 20210405
  Receipt Date: 20210405
  Transmission Date: 20210717
  Serious: Yes (Other)
  Sender: FDA-Public Use
  Company Number: NVSC2021ES073454

PATIENT
  Age: 59 Year
  Sex: Female

DRUGS (2)
  1. TRAMETINIB [Suspect]
     Active Substance: TRAMETINIB
     Indication: PAPILLARY THYROID CANCER
     Dosage: 2 MG, QD
     Route: 065
     Dates: start: 201808
  2. DABRAFENIB [Suspect]
     Active Substance: DABRAFENIB
     Indication: PAPILLARY THYROID CANCER
     Dosage: 150 MG, BID
     Route: 065
     Dates: start: 201808

REACTIONS (2)
  - Therapy partial responder [Unknown]
  - Pneumatosis intestinalis [Unknown]
